FAERS Safety Report 8726246 (Version 3)
Quarter: 2013Q1

REPORT INFORMATION
  Report Type: Spontaneous
  Country: FR (occurrence: FR)
  Receive Date: 20120816
  Receipt Date: 20130115
  Transmission Date: 20140127
  Serious: Yes (Hospitalization, Other)
  Sender: FDA-Public Use
  Company Number: FR-PFIZER INC-2012195251

PATIENT
  Age: 48 Year
  Sex: Male

DRUGS (1)
  1. RAPAMUNE [Suspect]
     Indication: RENAL TRANSPLANT
     Dosage: 3 MG, 3X/DAY
     Route: 048
     Dates: start: 201103, end: 201108

REACTIONS (4)
  - Lung infiltration [Unknown]
  - Hypertriglyceridaemia [Recovered/Resolved]
  - Hepatocellular injury [Recovered/Resolved]
  - Hepatic steatosis [Recovered/Resolved]
